FAERS Safety Report 5655678-1 (Version None)
Quarter: 2008Q1

REPORT INFORMATION
  Report Type: 
  Country: None (occurrence: None)
  Receive Date: 20080212
  Receipt Date: 20071115
  Transmission Date: 20080703
  Serious: Yes (Other)
  Sender: FDA-Public Use
  Company Number: MC200700708

PATIENT
  Age: 55 Year
  Sex: Male

DRUGS (2)
  1. ANGIOMAX [Suspect]
     Indication: PERCUTANEOUS CORONARY INTERVENTION
     Dosage: INTRAVENOUS
     Route: 042
  2. PLAVIX [Concomitant]

REACTIONS (3)
  - CHEST PAIN [None]
  - CORONARY ARTERY THROMBOSIS [None]
  - THROMBOCYTOPENIA [None]
